FAERS Safety Report 5004139-1 (Version None)
Quarter: 2006Q2

REPORT INFORMATION
  Report Type: 
  Country: None (occurrence: None)
  Receive Date: 20060517
  Receipt Date: 20060511
  Transmission Date: 20061013
  Serious: Yes (Other)
  Sender: FDA-Public Use
  Company Number: 2006AC00914

PATIENT
  Age: 21 Year
  Sex: Male

DRUGS (4)
  1. PROPOFOL [Suspect]
     Indication: SEDATION
     Route: 042
  2. PROPOFOL [Suspect]
     Indication: REDUCTION OF INCREASED INTRACRANIAL PRESSURE
     Route: 042
  3. DOPAMINE [Suspect]
  4. NOREPINEPHRINE [Suspect]

REACTIONS (5)
  - CARDIOMYOPATHY [None]
  - LACTIC ACIDOSIS [None]
  - METABOLIC ACIDOSIS [None]
  - PROPOFOL INFUSION SYNDROME [None]
  - VENTRICULAR DYSFUNCTION [None]
